FAERS Safety Report 8665737 (Version 2)
Quarter: 2014Q2

REPORT INFORMATION
  Report Type: Spontaneous
  Country: JP (occurrence: JP)
  Receive Date: 20120716
  Receipt Date: 20140527
  Transmission Date: 20141212
  Serious: Yes (Other)
  Sender: FDA-Public Use
  Company Number: PHHY2012JP060222

PATIENT
  Sex: Male

DRUGS (2)
  1. ZOMETA [Suspect]
     Indication: METASTASES TO BONE
     Dosage: 4 MG, UNK
     Route: 041
     Dates: start: 2006
  2. ADRENAL [Concomitant]

REACTIONS (5)
  - Periodontitis [Unknown]
  - Dental caries [Unknown]
  - Osteonecrosis [Unknown]
  - Tooth fracture [Unknown]
  - Toothache [Unknown]
